FAERS Safety Report 8119463-3 (Version None)
Quarter: 2012Q1

REPORT INFORMATION
  Report Type: 
  Country: None (occurrence: None)
  Receive Date: 20120207
  Receipt Date: 20120125
  Transmission Date: 20120608
  Serious: Yes (Hospitalization, Other)
  Sender: FDA-Public Use
  Company Number: PHHY2011DE01567

PATIENT
  Sex: Female

DRUGS (6)
  1. NEUROLEPTICS [Concomitant]
  2. AMISULPRIDE [Concomitant]
     Indication: SCHIZOPHRENIA
     Dosage: 600 MG/D
     Route: 048
  3. LORAZEPAM [Concomitant]
     Indication: ANXIETY DISORDER
     Dosage: 1.5 MG/D
     Route: 048
  4. PIPAMPERONE [Concomitant]
     Dosage: 200 MG/D
     Route: 048
  5. VALPROATE SODIUM [Concomitant]
     Dosage: 1800 MG/D
     Route: 048
  6. CLOZAPINE [Suspect]
     Indication: PSYCHOTIC DISORDER
     Dosage: 250 MG, QD
     Route: 048
     Dates: start: 20000101, end: 20110110

REACTIONS (3)
  - PLEURISY [None]
  - DELIRIUM [None]
  - C-REACTIVE PROTEIN INCREASED [None]
